FAERS Safety Report 12326334 (Version 1)
Quarter: 2016Q2

REPORT INFORMATION
  Report Type: Spontaneous
  Country: US (occurrence: None)
  Receive Date: 20160502
  Receipt Date: 20160502
  Transmission Date: 20160815
  Serious: Yes (Disabling)
  Sender: FDA-Public Use
  Company Number: None

PATIENT
  Age: 54 Year
  Sex: Female
  Weight: 70.31 kg

DRUGS (6)
  1. LEVOFLOXACIN, 500 MG AUROBINDO PHA [Suspect]
     Active Substance: LEVOFLOXACIN
     Indication: BRONCHITIS
     Dosage: 10 TABLETS ONCE A DAY
     Route: 048
     Dates: start: 20150927, end: 20150930
  2. VITAMIN D [Concomitant]
     Active Substance: CHOLECALCIFEROL
  3. CALCIUM [Concomitant]
     Active Substance: CALCIUM
  4. LEVOFLOXACIN, 500 MG AUROBINDO PHA [Suspect]
     Active Substance: LEVOFLOXACIN
     Indication: PNEUMONIA
     Dosage: 10 TABLETS ONCE A DAY
     Route: 048
     Dates: start: 20150927, end: 20150930
  5. TIROSINT [Concomitant]
     Active Substance: LEVOTHYROXINE SODIUM
  6. MAGNESIUM [Concomitant]
     Active Substance: MAGNESIUM

REACTIONS (9)
  - Pain in extremity [None]
  - Muscle spasms [None]
  - Paraesthesia [None]
  - Sleep disorder due to general medical condition, insomnia type [None]
  - Muscle tightness [None]
  - Gait disturbance [None]
  - Loss of control of legs [None]
  - Musculoskeletal stiffness [None]
  - Myalgia [None]

NARRATIVE: CASE EVENT DATE: 20150927
